FAERS Safety Report 4962972-6 (Version None)
Quarter: 2006Q2

REPORT INFORMATION
  Report Type: 
  Country: None (occurrence: None)
  Receive Date: 20060405
  Receipt Date: 20060209
  Transmission Date: 20061013
  Serious: Yes (Death)
  Sender: FDA-Public Use
  Company Number: 2006GB00252

PATIENT
  Age: 70 Year
  Sex: Female
  Weight: 142 kg

DRUGS (2)
  1. TAMOXIFEN CITRATE [Suspect]
     Indication: BREAST CANCER
     Route: 048
     Dates: end: 20060210
  2. METHYLPREDNISOLONE [Concomitant]
     Dosage: PULSED IV
     Route: 042

REACTIONS (12)
  - ABDOMINAL DISTENSION [None]
  - BRONCHOPNEUMONIA [None]
  - DEEP VEIN THROMBOSIS [None]
  - DYSPNOEA [None]
  - GASTROINTESTINAL HAEMORRHAGE [None]
  - GENERALISED OEDEMA [None]
  - HEPATIC CIRRHOSIS [None]
  - HEPATOSPLENOMEGALY [None]
  - PEMPHIGOID [None]
  - PURPURA [None]
  - ROSACEA [None]
  - THROMBOCYTOPENIA [None]
